FAERS Safety Report 8109451-5 (Version None)
Quarter: 2012Q1

REPORT INFORMATION
  Report Type: 
  Country: None (occurrence: None)
  Receive Date: 20120202
  Receipt Date: 20120119
  Transmission Date: 20120608
  Serious: Yes (Hospitalization)
  Sender: FDA-Public Use
  Company Number: FR-ABBOTT-12P-056-0893607-00

PATIENT
  Sex: Male

DRUGS (5)
  1. TELZIR [Concomitant]
     Indication: HIV INFECTION
     Route: 048
     Dates: start: 20070606, end: 20100601
  2. KIVEXA [Concomitant]
     Indication: HIV INFECTION
     Dosage: 600MG/300MG
     Route: 048
     Dates: start: 20100601
  3. NORVIR [Suspect]
     Indication: HIV INFECTION
     Route: 048
     Dates: start: 20070605, end: 20110530
  4. REYATAZ [Suspect]
     Indication: HIV INFECTION
     Route: 048
     Dates: start: 20060601, end: 20110530
  5. COMBIVIR [Concomitant]
     Indication: HIV INFECTION
     Route: 048
     Dates: start: 20070606, end: 20100601

REACTIONS (1)
  - OSTEONECROSIS [None]
